FAERS Safety Report 20617258 (Version 6)
Quarter: 2022Q4

REPORT INFORMATION
  Report Type: Report from Study
  Country: US (occurrence: US)
  Receive Date: 20220321
  Receipt Date: 20221226
  Transmission Date: 20230113
  Serious: No
  Sender: FDA-Public Use
  Company Number: NVSC2022US064139

PATIENT
  Sex: Female
  Weight: 87.5 kg

DRUGS (18)
  1. ENTRESTO [Suspect]
     Active Substance: SACUBITRIL\VALSARTAN
     Indication: Cardiac failure
     Dosage: UNK, BID
     Route: 048
     Dates: start: 20211210, end: 20211215
  2. TESSALON [Concomitant]
     Active Substance: BENZONATATE
     Indication: Cough
     Dosage: 1 DOSAGE FORM, TID
     Route: 048
     Dates: start: 20220313
  3. LIPITOR [Concomitant]
     Active Substance: ATORVASTATIN CALCIUM
     Indication: Product used for unknown indication
     Dosage: 1 DOSAGE FORM (BEFORE BEDTIME BY MOUTH) (30 CAPSULE)
     Route: 048
     Dates: start: 20220313
  4. DUPILUMAB [Concomitant]
     Active Substance: DUPILUMAB
     Indication: Dermatitis atopic
     Dosage: 300 MG, Q2W
     Route: 058
     Dates: start: 20220228
  5. DUPILUMAB [Concomitant]
     Active Substance: DUPILUMAB
     Indication: Eczema
  6. ALDACTONE [Concomitant]
     Active Substance: SPIRONOLACTONE
     Indication: Product used for unknown indication
     Dosage: 1 DOSAGE FORM (IN THE MORNING)
     Route: 048
     Dates: start: 20220215
  7. LASIX [Concomitant]
     Active Substance: FUROSEMIDE
     Indication: Product used for unknown indication
     Dosage: 1 DOSAGE FORM (IN THE MORNING BY MOUTH)
     Route: 048
     Dates: start: 20220215
  8. COREG [Concomitant]
     Active Substance: CARVEDILOL
     Indication: Product used for unknown indication
     Dosage: 1 DOSAGE FORM, BID (1 IN THE MORNING AND 1 BEFORE BEDTIME))
     Route: 048
     Dates: start: 20220215
  9. COREG [Concomitant]
     Active Substance: CARVEDILOL
     Dosage: 0.5 DOSAGE FORM, BID (FOR 2 WEEK)
     Route: 048
  10. COREG [Concomitant]
     Active Substance: CARVEDILOL
     Dosage: 1 DOSAGE FORM, BID
     Route: 048
  11. COZAAR [Concomitant]
     Active Substance: LOSARTAN POTASSIUM
     Indication: Product used for unknown indication
     Dosage: 1 DOSAGE FORM (IN THE MORNING BY MOUTH)
     Route: 048
     Dates: start: 20220215
  12. ASPIRIN [Concomitant]
     Active Substance: ASPIRIN
     Indication: Product used for unknown indication
     Dosage: 1 DOSAGE FORM (IN THE MORNING BY MOUTH)
     Route: 048
     Dates: start: 20211223
  13. CYMBALTA [Concomitant]
     Active Substance: DULOXETINE HYDROCHLORIDE
     Indication: Product used for unknown indication
     Dosage: 1 DOSAGE FORM (STREGHT: 30 MG) (IN THE MORNING BY MOUTH)
     Route: 048
     Dates: start: 20211216
  14. CYMBALTA [Concomitant]
     Active Substance: DULOXETINE HYDROCHLORIDE
     Dosage: 1 DOSAGE FORM (STREGHT: 60 MG) (IN THE MORNING BY MOUTH)
     Route: 048
     Dates: start: 20211216
  15. BUSPAR [Concomitant]
     Active Substance: BUSPIRONE HYDROCHLORIDE
     Indication: Product used for unknown indication
     Dosage: 1 DOSAGE FORM, BID
     Route: 065
     Dates: start: 20211216
  16. PROTONIX [Concomitant]
     Active Substance: PANTOPRAZOLE SODIUM
     Indication: Product used for unknown indication
     Dosage: 1 DOSAGE FORM, QD
     Route: 048
     Dates: start: 20210329
  17. VOLTAREN [Concomitant]
     Active Substance: DICLOFENAC SODIUM
     Indication: Product used for unknown indication
     Dosage: 2 G, TID
     Route: 061
     Dates: start: 20211209
  18. ANTIVERT [Concomitant]
     Active Substance: MECLIZINE HYDROCHLORIDE
     Indication: Dizziness
     Dosage: 1 DOSAGE FORM, TID (BY MOUTH AS NEEDED)
     Route: 048
     Dates: start: 20210414

REACTIONS (1)
  - Dizziness [Unknown]
